FAERS Safety Report 5018384-2 (Version None)
Quarter: 2006Q2

REPORT INFORMATION
  Report Type: 
  Country: None (occurrence: None)
  Receive Date: 20060530
  Receipt Date: 20060517
  Transmission Date: 20061013
  Serious: Yes (Hospitalization)
  Sender: FDA-Public Use
  Company Number: 2006010590

PATIENT
  Age: 75 Year
  Sex: Male
  Weight: 73 kg

DRUGS (14)
  1. SUTENT [Suspect]
     Indication: RENAL CELL CARCINOMA STAGE UNSPECIFIED
     Dosage: (50 MG, 1/DAY), ORAL
     Route: 048
     Dates: start: 20051129, end: 20051224
  2. LANTUS [Concomitant]
  3. NICORANDIL (NICORANDIL) [Concomitant]
  4. EUROBIOL (PANCREATIN) [Concomitant]
  5. TETRAZEPAM (TETRAZEPAM) [Concomitant]
  6. LEVOTHYROXINE SODIUM [Concomitant]
  7. REPAGLINIDE [Concomitant]
  8. ANDRACTIM (ANDROSTANOLONE) [Concomitant]
  9. RHINOFLUIMUCIL (ACETYLCYSTEINE, BENZALKONIUM CHLORIDE, TUAMINOHEPTANE) [Concomitant]
  10. HEXAQUINE (NIAOULI OIL, QUININE BENZOATE, THIAMINE HYDROCHLORIDE) [Concomitant]
  11. ATURGYL (FENOXAZOLINE HYDROCHLORIDE) [Concomitant]
  12. OMIX (TAMSULOSIN HYDROCHLORIDE) [Concomitant]
  13. LANSOPRAZOLE [Concomitant]
  14. CORTISAL (GLYCOL SALICYLATE, PREDNISOLONE) [Concomitant]

REACTIONS (1)
  - ATRIOVENTRICULAR BLOCK FIRST DEGREE [None]
